FAERS Safety Report 5892370-2 (Version None)
Quarter: 2008Q3

REPORT INFORMATION
  Report Type: 
  Country: None (occurrence: None)
  Receive Date: 20080918
  Receipt Date: 20080918
  Transmission Date: 20090109
  Serious: Yes (Hospitalization)
  Sender: FDA-Public Use
  Company Number: None

PATIENT
  Sex: Female

DRUGS (2)
  1. WARFARIN SODIUM [Suspect]
     Indication: ATRIAL FIBRILLATION
     Dosage: 10MG DAILY PO
     Route: 048
     Dates: start: 20080829, end: 20080910
  2. WARFARIN SODIUM [Suspect]
     Indication: CEREBROVASCULAR ACCIDENT PROPHYLAXIS
     Dosage: 10MG DAILY PO
     Route: 048
     Dates: start: 20080829, end: 20080910

REACTIONS (2)
  - INTERNATIONAL NORMALISED RATIO INCREASED [None]
  - JOINT SWELLING [None]
